FAERS Safety Report 13460494 (Version 2)
Quarter: 2017Q2

REPORT INFORMATION
  Report Type: Spontaneous
  Country: US (occurrence: US)
  Receive Date: 20170420
  Receipt Date: 20170505
  Transmission Date: 20170830
  Serious: No
  Sender: FDA-Public Use
  Company Number: US-PFIZER INC-2017166290

PATIENT
  Sex: Female

DRUGS (1)
  1. XELJANZ [Suspect]
     Active Substance: TOFACITINIB CITRATE
     Dosage: 5 MG, 2X/DAY
     Dates: start: 201611, end: 201702

REACTIONS (9)
  - Tenderness [Unknown]
  - Swelling [Unknown]
  - Dry eye [Unknown]
  - Arthralgia [Unknown]
  - Dysphagia [Unknown]
  - Fatigue [Unknown]
  - Musculoskeletal stiffness [Unknown]
  - Malaise [Unknown]
  - Myalgia [Unknown]
